FAERS Safety Report 7451879-0 (Version None)
Quarter: 2011Q2

REPORT INFORMATION
  Report Type: 
  Country: None (occurrence: None)
  Receive Date: 20110425
  Receipt Date: 20110321
  Transmission Date: 20111010
  Serious: Yes (Other)
  Sender: FDA-Public Use
  Company Number: 029058

PATIENT
  Sex: Female
  Weight: 85 kg

DRUGS (5)
  1. LACOSAMIDE [Suspect]
     Indication: EPILEPSY
     Dosage: (150 MG BID, INVESTIGATIONAL PRODUCT ORAL), (COMMERCIAL PRODUCT)
     Route: 048
     Dates: start: 20100807, end: 20110306
  2. LAMOTRIGINE [Concomitant]
  3. ETHINYL ESTRADIOL [Concomitant]
  4. NEUROTOP [Concomitant]
  5. LISINOPRIL [Concomitant]

REACTIONS (3)
  - PREGNANCY [None]
  - ABORTION INDUCED [None]
  - DRUG EXPOSURE DURING PREGNANCY [None]
